FAERS Safety Report 9717136 (Version 3)
Quarter: 2014Q1

REPORT INFORMATION
  Report Type: Report from Study
  Country: US (occurrence: US)
  Receive Date: 20131127
  Receipt Date: 20140307
  Transmission Date: 20141002
  Serious: Yes (Hospitalization)
  Sender: FDA-Public Use
  Company Number: US-PFIZER INC-2013330107

PATIENT
  Age: 42 Year
  Sex: Female
  Weight: 56.4 kg

DRUGS (16)
  1. IRINOTECAN HCL [Suspect]
     Indication: NEOPLASM MALIGNANT
     Dosage: 180 MG/M2, CYCLIC ON DAY ONE OF EACH CYCLE
     Route: 042
     Dates: start: 20130603, end: 20130923
  2. 5-FLUOROURACIL BIOSYN [Suspect]
     Indication: NEOPLASM MALIGNANT
     Dosage: 400 MG/M2, CYCLIC IV BOLUS ON DAY ONE OF EACH CYCLE
     Route: 040
     Dates: start: 20130603, end: 20130923
  3. 5-FLUOROURACIL BIOSYN [Suspect]
     Dosage: 2400 MG/M2, CYCLIC CONTINUOUS INFUSION OVER 46-48 HOURS
     Route: 042
     Dates: start: 20130603, end: 20130923
  4. RAMUCIRUMAB [Suspect]
     Indication: NEOPLASM MALIGNANT
     Dosage: 8 MG/KG, CYCLIC ON DAY ONE OF EACH CYCLE
     Route: 042
     Dates: start: 20130617, end: 20130923
  5. FOLINIC ACID [Suspect]
     Indication: NEOPLASM MALIGNANT
     Dosage: 400 MG/M2, CYCLIC ON DAY ONE OF EACH CYCLE
     Dates: start: 20130603, end: 20130923
  6. ALPRAZOLAM [Concomitant]
     Dosage: UNK
     Dates: start: 20130429
  7. MIRTAZAPINE [Concomitant]
     Dosage: UNK
     Dates: start: 2012
  8. FAMOTIDINE [Concomitant]
     Dosage: UNK
     Dates: start: 2012
  9. MORPHINE [Concomitant]
     Dosage: UNK
     Dates: start: 20130404
  10. ONDANSETRON [Concomitant]
     Dosage: UNK
     Dates: start: 20130326
  11. OMEPRAZOLE [Concomitant]
     Dosage: UNK
     Dates: start: 2012
  12. HYDROCODONE W/ACETAMINOPHEN [Concomitant]
     Dosage: UNK
     Dates: start: 20130404
  13. PROCHLORPERAZINE [Concomitant]
     Dosage: UNK
     Dates: start: 2012
  14. LOMOTIL [Concomitant]
     Dosage: UNK
     Dates: start: 20131023
  15. MEGESTROL ACETATE [Concomitant]
     Dosage: UNK
     Dates: start: 20130917, end: 20131018
  16. CEFEPIME [Concomitant]
     Indication: PNEUMONIA
     Dosage: UNK
     Dates: start: 20130903, end: 20130909

REACTIONS (3)
  - Clostridium difficile colitis [Recovered/Resolved]
  - Pulmonary embolism [Recovered/Resolved with Sequelae]
  - Musculoskeletal pain [Recovering/Resolving]
